FAERS Safety Report 6527752-9 (Version None)
Quarter: 2010Q1

REPORT INFORMATION
  Report Type: 
  Country: None (occurrence: None)
  Receive Date: 20100105
  Receipt Date: 20100105
  Transmission Date: 20100710
  Serious: Yes (Other)
  Sender: FDA-Public Use
  Company Number: None

PATIENT
  Sex: Female
  Weight: 56.6996 kg

DRUGS (1)
  1. VALACYCLOVIR [Suspect]

REACTIONS (5)
  - BALANCE DISORDER [None]
  - DYSKINESIA [None]
  - PRODUCT SUBSTITUTION ISSUE [None]
  - RASH [None]
  - URTICARIA [None]
